FAERS Safety Report 5278040-2 (Version None)
Quarter: 2007Q1

REPORT INFORMATION
  Report Type: 
  Country: None (occurrence: None)
  Receive Date: 20070327
  Receipt Date: 20070319
  Transmission Date: 20070707
  Serious: Yes (Hospitalization, Other)
  Sender: FDA-Public Use
  Company Number: US-ELI_LILLY_AND_COMPANY-US200703004048

PATIENT
  Age: 52 Year
  Sex: Female

DRUGS (4)
  1. HUMALOG [Suspect]
     Indication: DIABETES MELLITUS
     Dosage: UNK, UNK
     Dates: start: 20041001
  2. HUMULIN R [Suspect]
     Indication: DIABETES MELLITUS
     Dates: end: 20041001
  3. HUMULIN U [Suspect]
     Indication: DIABETES MELLITUS
     Dates: end: 20041001
  4. LANTUS [Concomitant]
     Indication: DIABETES MELLITUS
     Dosage: 13 U, UNK

REACTIONS (5)
  - BLINDNESS UNILATERAL [None]
  - BLOOD GLUCOSE DECREASED [None]
  - LOSS OF CONSCIOUSNESS [None]
  - RENAL DISORDER [None]
  - VISUAL ACUITY REDUCED [None]
